FAERS Safety Report 8211614-5 (Version None)
Quarter: 2012Q1

REPORT INFORMATION
  Report Type: 
  Country: None (occurrence: None)
  Receive Date: 20120315
  Receipt Date: 20120305
  Transmission Date: 20120608
  Serious: Yes (Hospitalization)
  Sender: FDA-Public Use
  Company Number: NL-MPIJNJ-2012-01126

PATIENT

DRUGS (11)
  1. CYCLOPHOSPHAMIDE [Suspect]
     Indication: MULTIPLE MYELOMA
     Dosage: 1000 MG, UNK
     Route: 042
     Dates: start: 20111212, end: 20120206
  2. ASCAL                              /00002702/ [Concomitant]
     Dosage: 100 MG, UNK
     Route: 048
  3. DEXAMETHASONE [Suspect]
     Indication: MULTIPLE MYELOMA
     Dosage: 40 MG, UNK
     Route: 048
     Dates: start: 20111212, end: 20120211
  4. FLUCONAZOLE [Concomitant]
     Dosage: 200 MG, UNK
     Route: 048
  5. COTRIM [Concomitant]
     Dosage: 960 MG, UNK
     Route: 048
  6. PANTOPRAZOLE [Concomitant]
     Dosage: 20 MG, UNK
     Route: 048
  7. OXYCODONE HCL [Concomitant]
     Dosage: 10 MG, UNK
  8. VELCADE [Suspect]
     Indication: MULTIPLE MYELOMA
     Dosage: 2.6 MG, UNK
     Route: 042
     Dates: start: 20111212, end: 20120209
  9. DIAZEPAM [Concomitant]
     Dosage: 5 MG, UNK
     Route: 048
  10. MOVICOLON [Concomitant]
  11. OXYCONTIN [Concomitant]
     Dosage: 30 MG, UNK
     Route: 048

REACTIONS (1)
  - PERIPHERAL SENSORY NEUROPATHY [None]
